FAERS Safety Report 8352824-6 (Version None)
Quarter: 2012Q2

REPORT INFORMATION
  Report Type: 
  Country: None (occurrence: None)
  Receive Date: 20120511
  Receipt Date: 20120427
  Transmission Date: 20120825
  Serious: Yes (Hospitalization)
  Sender: FDA-Public Use
  Company Number: JP-MYLANLABS-2012S1008909

PATIENT
  Age: 86 Year
  Sex: Female

DRUGS (5)
  1. DULOXETINE HYDROCHLORIDE [Interacting]
     Indication: DEPRESSION
     Dosage: 60 MG/DAY
     Route: 065
  2. BROTIZOLAM [Concomitant]
     Indication: DEPRESSION
     Dosage: 0.5 MG/DAY
     Route: 065
  3. DONEPEZIL HCL [Suspect]
     Indication: DEMENTIA ALZHEIMER'S TYPE
     Dosage: 3 MG/DAY
     Route: 065
  4. ROSUVASTATIN [Interacting]
     Indication: HYPERCHOLESTEROLAEMIA
     Dosage: 2.5 MG/DAY
     Route: 065
  5. DONEPEZIL HCL [Interacting]
     Dosage: 5 MG/DAY
     Route: 065

REACTIONS (2)
  - DELIRIUM [None]
  - DRUG INTERACTION [None]
